FAERS Safety Report 6123205-0 (Version None)
Quarter: 2009Q1

REPORT INFORMATION
  Report Type: 
  Country: None (occurrence: None)
  Receive Date: 20090318
  Receipt Date: 20080325
  Transmission Date: 20090719
  Serious: No
  Sender: FDA-Public Use
  Company Number: US-ABBOTT-08P-163-0444140-00

PATIENT
  Sex: Male
  Weight: 74.91 kg

DRUGS (3)
  1. BIAXIN XL [Suspect]
     Indication: SINUSITIS
     Route: 048
     Dates: start: 20000101, end: 20000101
  2. BIAXIN XL [Suspect]
     Route: 048
     Dates: start: 20061201, end: 20061201
  3. BIAXIN XL [Suspect]
     Route: 048
     Dates: start: 20080304, end: 20080318

REACTIONS (3)
  - INSOMNIA [None]
  - RASH ERYTHEMATOUS [None]
  - RASH PRURITIC [None]
